FAERS Safety Report 15743435 (Version 1)
Quarter: 2018Q4

REPORT INFORMATION
  Report Type: Report from Study
  Country: US (occurrence: US)
  Receive Date: 20181220
  Receipt Date: 20181220
  Transmission Date: 20190205
  Serious: Yes (Other)
  Sender: FDA-Public Use
  Company Number: US-BIOGEN-2018BI00600396

PATIENT
  Age: 50 Year
  Sex: Male
  Weight: 129.39 kg

DRUGS (1)
  1. TECFIDERA [Suspect]
     Active Substance: DIMETHYL FUMARATE
     Indication: MULTIPLE SCLEROSIS
     Route: 048
     Dates: start: 2014

REACTIONS (2)
  - Paraplegia [Not Recovered/Not Resolved]
  - Multiple sclerosis [Not Recovered/Not Resolved]

NARRATIVE: CASE EVENT DATE: 20171025
